FAERS Safety Report 5568075-4 (Version None)
Quarter: 2007Q4

REPORT INFORMATION
  Report Type: 
  Country: None (occurrence: None)
  Receive Date: 20071220
  Receipt Date: 20071217
  Transmission Date: 20080405
  Serious: Yes (Death, Hospitalization, Other)
  Sender: FDA-Public Use
  Company Number: AR-NOVOPROD-267994

PATIENT

DRUGS (2)
  1. NOVOSEVEN [Suspect]
     Indication: POST PROCEDURAL HAEMORRHAGE
     Dosage: 1 DOSE
     Route: 042
     Dates: start: 20070926, end: 20070926
  2. DOPAMINE HCL [Concomitant]
     Dosage: .3 UNK, QD
     Route: 042
     Dates: start: 20070926, end: 20070929

REACTIONS (3)
  - ISCHAEMIC STROKE [None]
  - METABOLIC DISORDER [None]
  - RENAL DISORDER [None]
